FAERS Safety Report 5901258-X (Version None)
Quarter: 2008Q3

REPORT INFORMATION
  Report Type: 
  Country: None (occurrence: None)
  Receive Date: 20080929
  Receipt Date: 20080812
  Transmission Date: 20090109
  Serious: No
  Sender: FDA-Public Use
  Company Number: US-BRISTOL-MYERS SQUIBB COMPANY-14268353

PATIENT
  Age: 45 Year
  Sex: Female

DRUGS (5)
  1. ORENCIA [Suspect]
     Indication: RHEUMATOID ARTHRITIS
     Route: 042
     Dates: start: 20060516
  2. FENTANYL TRANSDERMAL SYSTEM [Concomitant]
  3. DARVOCET [Concomitant]
  4. PRILOSEC [Concomitant]
  5. TOPROL-XL [Concomitant]

REACTIONS (1)
  - THROMBOCYTOPENIA [None]
